FAERS Safety Report 7280286-9 (Version None)
Quarter: 2011Q1

REPORT INFORMATION
  Report Type: 
  Country: None (occurrence: None)
  Receive Date: 20110208
  Receipt Date: 20101210
  Transmission Date: 20110831
  Serious: Yes (Other)
  Sender: FDA-Public Use
  Company Number: JP-BAYER-200910242BYL

PATIENT
  Age: 41 Year
  Sex: Female
  Weight: 43 kg

DRUGS (7)
  1. MAGNESIUM OXIDE [Concomitant]
     Dosage: 1.5 G (DAILY DOSE), , ORAL
     Route: 048
     Dates: start: 20081120
  2. GASTER D [Concomitant]
     Indication: GASTRITIS PROPHYLAXIS
     Dosage: 20 MG (DAILY DOSE), , ORAL
     Route: 048
     Dates: start: 20081120
  3. NOVAMIN [Concomitant]
     Indication: PROPHYLAXIS OF NAUSEA AND VOMITING
     Dosage: 15 MG (DAILY DOSE), , ORAL
     Route: 048
     Dates: start: 20081120
  4. NAUZELIN [Concomitant]
     Indication: PROPHYLAXIS OF NAUSEA AND VOMITING
     Dosage: 30 MG (DAILY DOSE), , ORAL
     Route: 048
     Dates: start: 20081215, end: 20081222
  5. TAKEPRON [Concomitant]
     Indication: GASTRITIS PROPHYLAXIS
     Dosage: 30 MG (DAILY DOSE), , ORAL
     Route: 048
     Dates: start: 20081218, end: 20081228
  6. OXYCONTIN [Concomitant]
     Indication: CONSTIPATION PROPHYLAXIS
     Dosage: 10 MG (DAILY DOSE), , ORAL
     Route: 048
     Dates: start: 20081120
  7. NEXAVAR [Suspect]
     Indication: RENAL CELL CARCINOMA
     Dosage: 800 MG (DAILY DOSE), , ORAL
     Route: 048
     Dates: start: 20081125, end: 20090202

REACTIONS (7)
  - LIPASE INCREASED [None]
  - ALOPECIA [None]
  - LIVER DISORDER [None]
  - HYPERTENSION [None]
  - PLATELET COUNT DECREASED [None]
  - PALMAR-PLANTAR ERYTHRODYSAESTHESIA SYNDROME [None]
  - THYROID DISORDER [None]
